FAERS Safety Report 7509437-5 (Version None)
Quarter: 2011Q2

REPORT INFORMATION
  Report Type: 
  Country: None (occurrence: None)
  Receive Date: 20110527
  Receipt Date: 20110518
  Transmission Date: 20111010
  Serious: Yes (Hospitalization, Other)
  Sender: FDA-Public Use
  Company Number: FR-ROCHE-770456

PATIENT
  Sex: Female
  Weight: 85 kg

DRUGS (6)
  1. CORTICOSTEROIDS [Concomitant]
  2. RAMIPRIL [Suspect]
     Indication: HYPERTENSION
     Route: 065
  3. METHOTREXATE [Concomitant]
     Route: 058
  4. ACTEMRA [Suspect]
     Indication: RHEUMATOID ARTHRITIS
     Route: 042
     Dates: start: 20100525, end: 20110217
  5. METHOTREXATE SODIUM [Suspect]
     Indication: RHEUMATOID ARTHRITIS
     Route: 058
     Dates: start: 20090101
  6. PREDNISONE [Suspect]
     Indication: RHEUMATOID ARTHRITIS
     Route: 048
     Dates: start: 20080101

REACTIONS (5)
  - SKIN NECROSIS [None]
  - ERYSIPELAS [None]
  - PANNICULITIS [None]
  - EAR LOBE INFECTION [None]
  - CYTOLYTIC HEPATITIS [None]
